FAERS Safety Report 8252304-2 (Version None)
Quarter: 2012Q2

REPORT INFORMATION
  Report Type: 
  Country: None (occurrence: None)
  Receive Date: 20120402
  Receipt Date: 20111012
  Transmission Date: 20120825
  Serious: No
  Sender: FDA-Public Use
  Company Number: US-ABBOTT-11P-163-0864607-00

PATIENT
  Weight: 145.28 kg

DRUGS (4)
  1. UNKNOWN MEDICATION [Concomitant]
     Indication: BLOOD PRESSURE
  2. UNKNOWN MEDICATION [Concomitant]
     Indication: PROSTATIC DISORDER
  3. UNKNOWN MEDICATION [Concomitant]
     Indication: FLUID RETENTION
  4. ANDROGEL [Suspect]
     Indication: BLOOD TESTOSTERONE DECREASED
     Dosage: 6 PUMPS PER DAY
     Dates: start: 20100101, end: 20110901

REACTIONS (2)
  - BLOOD TESTOSTERONE DECREASED [None]
  - DRUG INEFFECTIVE [None]
